FAERS Safety Report 18959175 (Version 1)
Quarter: 2021Q1

REPORT INFORMATION
  Report Type: Spontaneous
  Country: US (occurrence: US)
  Receive Date: 20210302
  Receipt Date: 20210302
  Transmission Date: 20210420
  Serious: No
  Sender: FDA-Public Use
  Company Number: US-MYLANLABS-2021M1010156

PATIENT
  Sex: Male
  Weight: 68 kg

DRUGS (4)
  1. CLONIDINE. [Concomitant]
     Active Substance: CLONIDINE
     Indication: BLOOD PRESSURE SYSTOLIC
     Dosage: UNK UNK, QD
     Dates: start: 202101
  2. CLONIDINE                          /00171102/ [Concomitant]
     Active Substance: CLONIDINE
     Indication: BLOOD PRESSURE SYSTOLIC
     Dosage: UNK
  3. VALSARTAN TABLETS, USP [Suspect]
     Active Substance: VALSARTAN
     Dosage: 320 MILLIGRAM, QD, 160 MG MORNING AND 160 MG NIGHT
     Route: 048
  4. VALSARTAN TABLETS, USP [Suspect]
     Active Substance: VALSARTAN
     Indication: BLOOD PRESSURE DIASTOLIC
     Dosage: 80 MG MORNING AND 80 MG NIGHT160 MILLIGRAM, QD
     Route: 048

REACTIONS (5)
  - Productive cough [Not Recovered/Not Resolved]
  - Drug ineffective [Recovered/Resolved]
  - Retching [Not Recovered/Not Resolved]
  - Impaired quality of life [Not Recovered/Not Resolved]
  - Insomnia [Not Recovered/Not Resolved]
